FAERS Safety Report 4737001-X (Version None)
Quarter: 2005Q3

REPORT INFORMATION
  Report Type: 
  Country: None (occurrence: None)
  Receive Date: 20050802
  Receipt Date: 20050722
  Transmission Date: 20060218
  Serious: Yes (Hospitalization, Other)
  Sender: FDA-Public Use
  Company Number: KII-2005-0017643

PATIENT
  Age: 37 Year
  Sex: Male

DRUGS (10)
  1. MORPHINE SULFATE [Suspect]
     Dosage: ORAL
     Route: 048
  2. HEROIN (DIAMORPHINE) [Suspect]
  3. VALPROIC ACID (VALPROIC ACID) [Suspect]
     Dosage: ORAL
     Route: 048
  4. ANTIPSYCHOTICS ( ) [Suspect]
     Dosage: ORAL
     Route: 048
  5. SSRI ( ) [Suspect]
     Dosage: ORAL
     Route: 048
  6. METFORMIN HCL [Suspect]
     Dosage: ORAL
     Route: 048
  7. GLIPIZIDE [Suspect]
     Dosage: ORAL
     Route: 048
  8. ALBUTEROL [Suspect]
     Indication: CHRONIC OBSTRUCTIVE PULMONARY DISEASE
     Dosage: INHALATION
     Route: 055
  9. ETHANOL (ETHANOL) [Suspect]
     Dosage: SEE TEXT, ORAL
     Route: 048
  10. TETRAHYDROCANNABINOL (TETRAHYDROCANNABINOL) [Suspect]

REACTIONS (13)
  - AMMONIA INCREASED [None]
  - ASPIRATION [None]
  - COMA [None]
  - DRUG SCREEN POSITIVE [None]
  - HYPERHIDROSIS [None]
  - HYPERKALAEMIA [None]
  - INTENTIONAL MISUSE [None]
  - MULTIPLE DRUG OVERDOSE [None]
  - POLYSUBSTANCE ABUSE [None]
  - PYREXIA [None]
  - RENAL FAILURE [None]
  - SPUTUM ABNORMAL [None]
  - URINE ABNORMALITY [None]
